FAERS Safety Report 24677976 (Version 1)
Quarter: 2024Q4

REPORT INFORMATION
  Report Type: Spontaneous
  Country: PA (occurrence: PA)
  Receive Date: 20241129
  Receipt Date: 20241129
  Transmission Date: 20250115
  Serious: Yes (Other)
  Sender: SANDOZ
  Company Number: PA-002147023-NVSC2024PA225757

PATIENT
  Sex: Female

DRUGS (4)
  1. FULVESTRANT [Suspect]
     Active Substance: FULVESTRANT
     Indication: Product used for unknown indication
     Dosage: 2 DOSAGE FORM (INJECTION)
     Route: 042
  2. KISQALI [Suspect]
     Active Substance: RIBOCICLIB
     Indication: Breast cancer metastatic
     Dosage: 2 (400 MG), QD
     Route: 048
     Dates: start: 2023
  3. KISQALI [Suspect]
     Active Substance: RIBOCICLIB
     Dosage: 2 (400 MG), QD
     Route: 048
  4. VITAMINS [Concomitant]
     Active Substance: VITAMINS
     Indication: Bone disorder
     Dosage: UNK
     Route: 042

REACTIONS (8)
  - Metastases to bone [Unknown]
  - Metastases to spine [Unknown]
  - Feeling hot [Unknown]
  - Viral infection [Unknown]
  - Weight increased [Unknown]
  - Diarrhoea [Unknown]
  - Headache [Unknown]
  - Fatigue [Unknown]
